FAERS Safety Report 9672149 (Version 1)
Quarter: 2013Q4

REPORT INFORMATION
  Report Type: Spontaneous
  Country: US (occurrence: US)
  Receive Date: 20131106
  Receipt Date: 20131106
  Transmission Date: 20140711
  Serious: No
  Sender: FDA-Public Use
  Company Number: US-ENDO PHARMACEUTICALS INC.-HCDA20130003

PATIENT
  Sex: Male

DRUGS (1)
  1. HYDROCODONE/ACETAMINOPHEN 10MG/500MG [Suspect]
     Indication: PAIN
     Dosage: 30/1500 MG
     Route: 048
     Dates: start: 2012

REACTIONS (3)
  - Blood pressure increased [Not Recovered/Not Resolved]
  - Abdominal pain upper [Recovered/Resolved]
  - Dyspnoea [Not Recovered/Not Resolved]
